FAERS Safety Report 5898017-3 (Version None)
Quarter: 2008Q3

REPORT INFORMATION
  Report Type: 
  Country: None (occurrence: None)
  Receive Date: 20080925
  Receipt Date: 20080910
  Transmission Date: 20090109
  Serious: Yes (Death)
  Sender: FDA-Public Use
  Company Number: DE-GENENTECH-268017

PATIENT
  Sex: Female

DRUGS (2)
  1. AVASTIN [Suspect]
     Indication: COLORECTAL CANCER
     Dosage: 450 MG, Q3W
     Route: 042
     Dates: start: 20080509, end: 20080829
  2. CAPECITABINE [Suspect]
     Indication: COLORECTAL CANCER
     Dosage: 1500 MG, BID
     Route: 048
     Dates: start: 20080509, end: 20080908

REACTIONS (7)
  - ANAEMIA [None]
  - CARDIAC FAILURE [None]
  - DEATH [None]
  - DIARRHOEA [None]
  - GENERAL PHYSICAL HEALTH DETERIORATION [None]
  - HYPERTONIA [None]
  - URINARY TRACT INFECTION [None]
